FAERS Safety Report 25255156 (Version 1)
Quarter: 2025Q2

REPORT INFORMATION
  Report Type: Spontaneous
  Country: US (occurrence: US)
  Receive Date: 20250430
  Receipt Date: 20250430
  Transmission Date: 20250716
  Serious: No
  Sender: GLENMARK
  Company Number: US-GLENMARK PHARMACEUTICALS-2025GMK097589

PATIENT

DRUGS (1)
  1. IMIQUIMOD [Suspect]
     Active Substance: IMIQUIMOD
     Indication: Product used for unknown indication
     Dosage: UNK, QD, FIVE TIMES DAILY FOR TWO TO THREE WEEKS, TO BE APPLIED ON THE FACE
     Route: 061

REACTIONS (4)
  - Product prescribing issue [Unknown]
  - Recalled product [Unknown]
  - Product communication issue [Unknown]
  - Product label issue [Unknown]
